FAERS Safety Report 20613758 (Version 4)
Quarter: 2022Q2

REPORT INFORMATION
  Report Type: Report from Study
  Country: CA (occurrence: CA)
  Receive Date: 20220319
  Receipt Date: 20220425
  Transmission Date: 20220720
  Serious: Yes (Hospitalization, Other)
  Sender: FDA-Public Use
  Company Number: CA-ABBVIE-22K-028-4316855-00

PATIENT
  Sex: Female

DRUGS (1)
  1. HUMIRA [Suspect]
     Active Substance: ADALIMUMAB
     Indication: Hidradenitis
     Route: 058
     Dates: start: 20220202, end: 2022

REACTIONS (10)
  - Hallucination [Unknown]
  - Blindness [Unknown]
  - Nausea [Unknown]
  - Vomiting [Unknown]
  - Encephalitis viral [Unknown]
  - Tremor [Unknown]
  - Fluid intake reduced [Unknown]
  - Mobility decreased [Not Recovered/Not Resolved]
  - Hypophagia [Unknown]
  - Hypoaesthesia [Not Recovered/Not Resolved]

NARRATIVE: CASE EVENT DATE: 20220101
